FAERS Safety Report 5902834-0 (Version None)
Quarter: 2008Q3

REPORT INFORMATION
  Report Type: 
  Country: None (occurrence: None)
  Receive Date: 20080926
  Receipt Date: 20080915
  Transmission Date: 20090109
  Serious: Yes (Other)
  Sender: FDA-Public Use
  Company Number: B0537662A

PATIENT
  Age: 45 Year
  Sex: Male

DRUGS (6)
  1. ABACAVIR SULFATE [Suspect]
     Indication: ANTIRETROVIRAL THERAPY
     Dosage: 600 MG, PER DAY,
  2. RIFAMPICIN [Concomitant]
  3. ISONIAZID [Concomitant]
  4. PYRAZINAMIDE [Concomitant]
  5. ZIDOVUDINE [Concomitant]
  6. TRUVADA [Concomitant]

REACTIONS (6)
  - ABDOMINAL PAIN [None]
  - BRONCHOSCOPY ABNORMAL [None]
  - CANDIDIASIS [None]
  - MALAISE [None]
  - NAUSEA [None]
  - PYREXIA [None]
